FAERS Safety Report 8194100-0 (Version None)
Quarter: 2012Q1

REPORT INFORMATION
  Report Type: 
  Country: None (occurrence: None)
  Receive Date: 20120308
  Receipt Date: 20120306
  Transmission Date: 20120608
  Serious: Yes (Death)
  Sender: FDA-Public Use
  Company Number: CA-ABBOTT-12P-028-0912317-00

PATIENT
  Age: 64 Year
  Sex: Male

DRUGS (3)
  1. PROZAC [Interacting]
     Indication: BIPOLAR DISORDER
  2. BIAXIN [Suspect]
     Indication: BRONCHITIS
  3. DEXTROMETHORPHAN HYDROBROMIDE [Interacting]
     Indication: COUGH

REACTIONS (2)
  - CARDIAC FAILURE [None]
  - DRUG INTERACTION [None]
